FAERS Safety Report 14836054 (Version 6)
Quarter: 2019Q2

REPORT INFORMATION
  Report Type: Report from Study
  Country: BE (occurrence: BE)
  Receive Date: 20180502
  Receipt Date: 20190403
  Transmission Date: 20190711
  Serious: Yes (Death, Hospitalization)
  Sender: FDA-Public Use
  Company Number: BE-ACCORD-066409

PATIENT
  Age: 71 Year
  Sex: Female
  Weight: 58 kg

DRUGS (15)
  1. DAFALGAN FORTE [Concomitant]
     Indication: PRODUCT USED FOR UNKNOWN INDICATION
     Dosage: 4 G,PRN
     Route: 048
     Dates: start: 20161109
  2. ALOXI [Concomitant]
     Active Substance: PALONOSETRON HYDROCHLORIDE
     Dosage: .25 MG,PRN
     Route: 042
     Dates: start: 20171004
  3. FLUOROURACIL. [Suspect]
     Active Substance: FLUOROURACIL
     Indication: COLORECTAL CANCER METASTATIC
     Dosage: DOSE 1 (UNK UNIT)
     Route: 042
  4. LEUCOVORIN. [Suspect]
     Active Substance: LEUCOVORIN
     Indication: COLORECTAL CANCER METASTATIC
     Dosage: DOSE 1 (UNK UNIT)
     Route: 042
  5. MACROGOL/POTASSIUM CHLORIDE/SODIUM BICARBONATE/SODIUM CHLORIDE [Concomitant]
     Route: 048
     Dates: start: 20161109
  6. PROLIA [Concomitant]
     Active Substance: DENOSUMAB
     Dosage: 60MG/ML: 1 ML
     Route: 058
  7. BETMIGA [Concomitant]
     Active Substance: MIRABEGRON
     Dosage: 50 MG,QD
     Route: 048
     Dates: start: 20171018
  8. PANTOPRAZOLE [Concomitant]
     Active Substance: PANTOPRAZOLE
     Dosage: 20 MG,QOD
     Route: 048
     Dates: start: 20170927
  9. CALCIT-D3 [Concomitant]
     Dosage: 1000MG/880IE
     Route: 048
  10. AFLIBERCEPT [Suspect]
     Active Substance: AFLIBERCEPT
     Indication: COLORECTAL CANCER METASTATIC
     Dosage: DOSE 1 (UNK UNIT)
     Route: 042
     Dates: start: 20171004, end: 20171004
  11. IMODIUM [Concomitant]
     Active Substance: LOPERAMIDE HYDROCHLORIDE
     Dosage: AS NECESSARY
     Route: 048
     Dates: start: 20171018
  12. IRINOTECAN [Suspect]
     Active Substance: IRINOTECAN
     Indication: COLORECTAL CANCER METASTATIC
     Dosage: DOSE 1 (UNK UNIT)
     Route: 042
  13. ATROPINE. [Concomitant]
     Active Substance: ATROPINE
     Dosage: AS NECESSARY
     Route: 058
     Dates: start: 20171004
  14. AACIDEXAM [Concomitant]
     Active Substance: DEXAMETHASONE
     Dosage: 10 MG,PRN
     Route: 042
     Dates: start: 20171004
  15. FEROGRAD-500 [Concomitant]
     Dosage: 525 MG,QD
     Route: 048
     Dates: start: 20161109

REACTIONS (3)
  - Decreased appetite [Not Recovered/Not Resolved]
  - General physical health deterioration [Fatal]
  - Hypocalcaemia [Not Recovered/Not Resolved]

NARRATIVE: CASE EVENT DATE: 20171108
